FAERS Safety Report 13485139 (Version 1)
Quarter: 2017Q2

REPORT INFORMATION
  Report Type: Spontaneous
  Country: US (occurrence: US)
  Receive Date: 20170426
  Receipt Date: 20170426
  Transmission Date: 20170830
  Serious: No
  Sender: FDA-Public Use
  Company Number: None

PATIENT
  Age: 79 Year
  Sex: Male
  Weight: 86.26 kg

DRUGS (13)
  1. SYNTHROID [Concomitant]
     Active Substance: LEVOTHYROXINE SODIUM
  2. MAGNISIUM [Concomitant]
  3. MELATONIN [Concomitant]
     Active Substance: MELATONIN
  4. VITAMIN D3 [Concomitant]
     Active Substance: CHOLECALCIFEROL
  5. PROBIOTIC [Concomitant]
     Active Substance: PROBIOTICS NOS
  6. LIPITOR [Suspect]
     Active Substance: ATORVASTATIN CALCIUM
     Dosage: AT BEDTIME
     Route: 048
     Dates: end: 19980918
  7. COREG [Concomitant]
     Active Substance: CARVEDILOL
  8. COQ10 [Concomitant]
     Active Substance: UBIDECARENONE
  9. COZAAR [Concomitant]
     Active Substance: LOSARTAN POTASSIUM
  10. PRILOSEC [Concomitant]
     Active Substance: OMEPRAZOLE MAGNESIUM
  11. BRILINTA [Concomitant]
     Active Substance: TICAGRELOR
  12. NORVASC [Concomitant]
     Active Substance: AMLODIPINE BESYLATE
  13. ASPRIN [Concomitant]
     Active Substance: ASPIRIN

REACTIONS (3)
  - Arthralgia [None]
  - Headache [None]
  - Back pain [None]

NARRATIVE: CASE EVENT DATE: 19980918
